FAERS Safety Report 7471578-9 (Version None)
Quarter: 2011Q2

REPORT INFORMATION
  Report Type: 
  Country: None (occurrence: None)
  Receive Date: 20110511
  Receipt Date: 20101228
  Transmission Date: 20111010
  Serious: Yes (Hospitalization)
  Sender: FDA-Public Use
  Company Number: US-BAYER-201033396NA

PATIENT
  Age: 19 Year
  Sex: Female
  Weight: 59.864 kg

DRUGS (15)
  1. YASMIN [Suspect]
     Indication: CONTRACEPTION
     Dosage: UNK UNK, UNK
     Route: 048
     Dates: start: 20070501, end: 20070901
  2. LONG ACTING BETA AGONISTS [Concomitant]
  3. DROSPIRENONE AND ETHINYL ESTRADIOL [Suspect]
     Indication: MENORRHAGIA
  4. AMOXICILLIN [Concomitant]
     Dosage: 875 MG, BID
  5. CORTICOSTEROID NOS [Concomitant]
  6. YAZ [Suspect]
     Indication: MENORRHAGIA
  7. ORAL CONTRACEPTIVE NOS [Concomitant]
     Dosage: UNK
     Dates: start: 20060701
  8. YASMIN [Suspect]
     Indication: MENORRHAGIA
  9. PREDNISONE [Concomitant]
     Dosage: 10 MG, UNK
  10. YAZ [Suspect]
     Indication: CONTRACEPTION
     Dosage: UNK
     Dates: start: 20070501, end: 20070901
  11. ROCEPHIN [Concomitant]
     Indication: PNEUMONIA
  12. AVELOX [Concomitant]
  13. TUSSAFED-HCG [Concomitant]
  14. DROSPIRENONE AND ETHINYL ESTRADIOL [Suspect]
     Indication: CONTRACEPTION
     Dosage: UNK
     Dates: start: 20070501, end: 20070901
  15. DARVOCET-N 50 [Concomitant]
     Dosage: 100 MG, UNK

REACTIONS (2)
  - MENTAL DISORDER [None]
  - DEEP VEIN THROMBOSIS [None]
